FAERS Safety Report 16758413 (Version 13)
Quarter: 2022Q2

REPORT INFORMATION
  Report Type: Report from Study
  Country: CO (occurrence: CO)
  Receive Date: 20190830
  Receipt Date: 20220613
  Transmission Date: 20220720
  Serious: Yes (Hospitalization, Other)
  Sender: FDA-Public Use
  Company Number: CO-AMGEN-COLSL2018120518

PATIENT
  Age: 63 Year
  Sex: Female

DRUGS (14)
  1. NPLATE [Suspect]
     Active Substance: ROMIPLOSTIM
     Indication: Immune thrombocytopenia
     Dosage: 270 MICROGRAM, QWK
     Route: 058
     Dates: start: 20171004
  2. NPLATE [Suspect]
     Active Substance: ROMIPLOSTIM
     Dosage: 170 MICROGRAM, QWK
     Route: 058
     Dates: start: 20180409
  3. NPLATE [Suspect]
     Active Substance: ROMIPLOSTIM
     Dosage: 200 MICROGRAM
     Route: 058
  4. NPLATE [Suspect]
     Active Substance: ROMIPLOSTIM
     Dosage: 250 MICROGRAM
     Route: 058
  5. NPLATE [Suspect]
     Active Substance: ROMIPLOSTIM
     Dosage: 100 MICROGRAM
     Route: 058
  6. NPLATE [Suspect]
     Active Substance: ROMIPLOSTIM
     Dosage: 80 MICROGRAM, QWK
     Route: 058
  7. NPLATE [Suspect]
     Active Substance: ROMIPLOSTIM
     Dosage: 80 MICROGRAM
     Route: 058
  8. NPLATE [Suspect]
     Active Substance: ROMIPLOSTIM
     Dosage: 140 MICROGRAM, QWK
     Route: 058
     Dates: start: 20200127
  9. NPLATE [Suspect]
     Active Substance: ROMIPLOSTIM
     Dosage: 250 MICROGRAM, QWK
     Route: 058
     Dates: start: 20210806
  10. NPLATE [Suspect]
     Active Substance: ROMIPLOSTIM
     Dosage: 359 MICROGRAM, QWK
     Route: 058
  11. NPLATE [Suspect]
     Active Substance: ROMIPLOSTIM
     Dosage: 210 MICROGRAM, QWK
     Route: 058
  12. NPLATE [Suspect]
     Active Substance: ROMIPLOSTIM
     Dosage: 270 MICROGRAM, QWK
     Route: 058
  13. NPLATE [Suspect]
     Active Substance: ROMIPLOSTIM
     Dosage: 270 MICROGRAM, QWK
     Route: 058
  14. NPLATE [Suspect]
     Active Substance: ROMIPLOSTIM
     Dosage: 250 MICROGRAM, QWK
     Route: 058

REACTIONS (4)
  - Thrombocytosis [Not Recovered/Not Resolved]
  - Urinary tract infection [Not Recovered/Not Resolved]
  - Thrombocytopenia [Recovered/Resolved]
  - Off label use [Not Recovered/Not Resolved]

NARRATIVE: CASE EVENT DATE: 20180924
